FAERS Safety Report 5196220-1 (Version None)
Quarter: 2006Q4

REPORT INFORMATION
  Report Type: 
  Country: None (occurrence: None)
  Receive Date: 20061222
  Receipt Date: 20061207
  Transmission Date: 20070319
  Serious: Yes (Hospitalization)
  Sender: FDA-Public Use
  Company Number: 2006BH014948

PATIENT
  Age: 69 Year
  Sex: Male

DRUGS (2)
  1. DEXTROSE 5% [Suspect]
     Indication: COLORECTAL CANCER
     Dosage: 220 ML
     Dates: start: 20061204, end: 20061205
  2. FLUOROURACIL [Suspect]
     Indication: COLORECTAL CANCER
     Dates: start: 20061204, end: 20061205

REACTIONS (3)
  - DYSARTHRIA [None]
  - INCORRECT DRUG ADMINISTRATION RATE [None]
  - MENTAL STATUS CHANGES [None]
